FAERS Safety Report 24039867 (Version 2)
Quarter: 2024Q3

REPORT INFORMATION
  Report Type: Report from Study
  Country: ZA (occurrence: ZA)
  Receive Date: 20240702
  Receipt Date: 20240726
  Transmission Date: 20241017
  Serious: No
  Sender: ROCHE
  Company Number: ZA-ROCHE-10000011839

PATIENT
  Age: 45 Year
  Sex: Female

DRUGS (1)
  1. OCREVUS [Suspect]
     Active Substance: OCRELIZUMAB
     Indication: Multiple sclerosis
     Route: 050

REACTIONS (1)
  - Tuberculosis [Unknown]

NARRATIVE: CASE EVENT DATE: 20240529
